FAERS Safety Report 6557699-3 (Version None)
Quarter: 2010Q1

REPORT INFORMATION
  Report Type: 
  Country: None (occurrence: None)
  Receive Date: 20100129
  Receipt Date: 20100118
  Transmission Date: 20100710
  Serious: Yes (Other)
  Sender: FDA-Public Use
  Company Number: NL-AMGEN-US366531

PATIENT
  Age: 69 Year
  Sex: Female

DRUGS (6)
  1. ENBREL [Suspect]
     Indication: RHEUMATOID ARTHRITIS
     Dates: end: 20090101
  2. ENBREL [Suspect]
     Dates: start: 20090101
  3. METOJECT [Suspect]
     Indication: RHEUMATOID ARTHRITIS
     Dates: start: 20050101
  4. CINNARIZINE [Concomitant]
     Indication: MENIERE'S DISEASE
     Dosage: 25 MG AS NEEDED
  5. METHOTREXATE [Concomitant]
     Indication: RHEUMATOID ARTHRITIS
     Dosage: TABLETS
     Dates: start: 20030101, end: 20050101
  6. BETAHISTINE DIHYDROCHLORIDE [Concomitant]
     Indication: MENIERE'S DISEASE
     Dosage: 16 MG AS NEEDED

REACTIONS (10)
  - DEAFNESS UNILATERAL [None]
  - EPISTAXIS [None]
  - EUSTACHIAN TUBE DISORDER [None]
  - FATIGUE [None]
  - FEELING COLD [None]
  - LISTLESS [None]
  - NASOPHARYNGITIS [None]
  - OROPHARYNGEAL PAIN [None]
  - RESPIRATORY TRACT INFECTION [None]
  - RHINALGIA [None]
